FAERS Safety Report 15543770 (Version 2)
Quarter: 2019Q2

REPORT INFORMATION
  Report Type: Report from Study
  Country: US (occurrence: US)
  Receive Date: 20181023
  Receipt Date: 20190401
  Transmission Date: 20190711
  Serious: Yes (Death, Hospitalization)
  Sender: FDA-Public Use
  Company Number: US-ADAMAS PHARMA, LLC-2018ADA01705

PATIENT
  Age: 70 Year
  Sex: Male
  Weight: 84.81 kg

DRUGS (25)
  1. LEVOTHYROXINE. [Concomitant]
     Active Substance: LEVOTHYROXINE
     Dosage: 150 ?G, 1X/DAY
     Route: 048
  2. LEXAPRO [Concomitant]
     Active Substance: ESCITALOPRAM OXALATE
     Dosage: 20 MG, 1X/DAY
     Route: 048
  3. SINEMET [Concomitant]
     Active Substance: CARBIDOPA\LEVODOPA
     Dosage: 1 TABLETS, 1X/DAY
     Route: 048
  4. RITALIN [Concomitant]
     Active Substance: METHYLPHENIDATE HYDROCHLORIDE
     Dosage: 5 MG, 2X/DAY (AT BREAKFAST AND LUNCH)
     Route: 048
     Dates: end: 20180906
  5. AMANTADINE HYDROCHLORIDE. [Concomitant]
     Active Substance: AMANTADINE HYDROCHLORIDE
     Dosage: 100 MG, 1X/DAY
     Route: 048
  6. GABAPENTIN. [Concomitant]
     Active Substance: GABAPENTIN
     Dosage: 300 MG, 2X/DAY
     Route: 048
  7. LEVOTHYROXINE. [Concomitant]
     Active Substance: LEVOTHYROXINE
     Dosage: 100 ?G, 1X/DAY
  8. RYTARY [Concomitant]
     Active Substance: CARBIDOPA\LEVODOPA
     Dosage: 2 CAPSULES, 4X/DAY
     Route: 048
  9. VITAMIN D3 [Concomitant]
     Active Substance: CHOLECALCIFEROL
     Dosage: 1000 IU, 1X/DAY
     Route: 048
  10. AMANTADINE HYDROCHLORIDE. [Concomitant]
     Active Substance: AMANTADINE HYDROCHLORIDE
     Dosage: 100 MG, 2X/DAY
     Route: 048
  11. SEROQUEL [Suspect]
     Active Substance: QUETIAPINE FUMARATE
     Dosage: 50 MG, 1X/DAY AT BEDTIME
     Dates: start: 20180906
  12. WELLBUTRIN XL [Concomitant]
     Active Substance: BUPROPION HYDROCHLORIDE
     Dosage: 150 MG, 1X/DAY
     Route: 048
  13. GLUCOSAMINE CHONDROITIN [Concomitant]
     Active Substance: CHONDROITIN SULFATE (BOVINE)\GLUCOSAMINE HYDROCHLORIDE
     Dosage: 1 CAPSULES, 1X/DAY
     Route: 048
  14. GOCOVRI [Suspect]
     Active Substance: AMANTADINE
     Dosage: 274 MG, 1X/DAY AT BEDTIME
     Route: 048
     Dates: start: 20180707, end: 20180912
  15. EXELON [Suspect]
     Active Substance: RIVASTIGMINE TARTRATE
     Dosage: 13.3 MG, 1X/DAY
     Route: 062
     Dates: start: 20180831, end: 20180906
  16. IBUPROFEN. [Concomitant]
     Active Substance: IBUPROFEN
     Dosage: 600 MG, 1X/DAY
     Route: 048
  17. GABAPENTIN. [Concomitant]
     Active Substance: GABAPENTIN
     Dosage: 600 MG, 1X/DAY AT BEDTIME
     Route: 048
  18. ACETAMINOPHEN. [Concomitant]
     Active Substance: ACETAMINOPHEN
     Dosage: 650 MG, UP TO 4X/DAY AS NEEDED
     Route: 048
  19. LORAZEPAM. [Concomitant]
     Active Substance: LORAZEPAM
     Dosage: 0.5 MG, 1X/DAY
     Route: 048
  20. GOCOVRI [Suspect]
     Active Substance: AMANTADINE
     Indication: DYSKINESIA
     Dosage: 137 MG, 1X/DAY AT BEDTIME
     Route: 048
     Dates: start: 20180630, end: 20180706
  21. EXELON [Suspect]
     Active Substance: RIVASTIGMINE TARTRATE
     Dosage: 9.6 MG, 1X/DAY
     Dates: start: 20180910, end: 20180913
  22. ASPIRIN. [Concomitant]
     Active Substance: ASPIRIN
     Dosage: 81 MG, 1X/DAY
     Route: 048
  23. EXELON [Suspect]
     Active Substance: RIVASTIGMINE TARTRATE
     Dosage: UNK UNK, 1X/DAY
     Route: 062
     Dates: end: 20180831
  24. COMTAN [Concomitant]
     Active Substance: ENTACAPONE
     Dosage: 200 MG, 2X/DAY
     Route: 048
  25. GABAPENTIN. [Concomitant]
     Active Substance: GABAPENTIN
     Dosage: 300 MG, 4X/DAY
     Route: 048

REACTIONS (10)
  - Cardiac arrest [Fatal]
  - Anxiety [None]
  - Depression [Not Recovered/Not Resolved]
  - Dysstasia [Not Recovered/Not Resolved]
  - Atelectasis [Not Recovered/Not Resolved]
  - Differential white blood cell count abnormal [Not Recovered/Not Resolved]
  - Loss of personal independence in daily activities [Not Recovered/Not Resolved]
  - Hallucinations, mixed [Not Recovered/Not Resolved]
  - Gait inability [Not Recovered/Not Resolved]
  - Neuropsychiatric symptoms [Not Recovered/Not Resolved]

NARRATIVE: CASE EVENT DATE: 2018
